FAERS Safety Report 8826136 (Version 1)
Quarter: 2012Q4

REPORT INFORMATION
  Report Type: 
  Country: PL (occurrence: PL)
  Receive Date: 20121008
  Receipt Date: 20121008
  Transmission Date: 20130627
  Serious: Yes (Life-Threatening, Hospitalization)
  Sender: FDA-Public Use
  Company Number: PL-JNJFOC-20120913061

PATIENT
  Age: 44 Year
  Sex: Male

DRUGS (4)
  1. HALOPERIDOL [Suspect]
     Indication: SCHIZOPHRENIA, PARANOID TYPE
     Route: 048
  2. HALOPERIDOL [Suspect]
     Indication: SCHIZOPHRENIA, PARANOID TYPE
     Route: 048
  3. CLOZAPINE [Suspect]
     Indication: SCHIZOPHRENIA, PARANOID TYPE
     Route: 048
  4. CLOZAPINE [Suspect]
     Indication: SCHIZOPHRENIA, PARANOID TYPE
     Route: 048

REACTIONS (6)
  - Schizophrenia, paranoid type [Recovering/Resolving]
  - Neuroleptic malignant syndrome [Recovered/Resolved]
  - Respiratory failure [Unknown]
  - C-reactive protein increased [Unknown]
  - Anaemia [Unknown]
  - Hypokalaemia [Unknown]
